FAERS Safety Report 6391003-9 (Version None)
Quarter: 2009Q4

REPORT INFORMATION
  Report Type: 
  Country: None (occurrence: None)
  Receive Date: 20091007
  Receipt Date: 20090930
  Transmission Date: 20100525
  Serious: Yes (Hospitalization)
  Sender: FDA-Public Use
  Company Number: US-BIOGENIDEC-2007BI020386

PATIENT
  Age: 53 Year
  Sex: Female
  Weight: 56 kg

DRUGS (6)
  1. TYSABRI [Suspect]
     Indication: MULTIPLE SCLEROSIS
     Route: 042
     Dates: start: 20070614
  2. DILANTIN [Concomitant]
     Indication: CONVULSION
  3. NEURONTIN [Concomitant]
     Indication: CONVULSION
  4. LAMICTAL [Concomitant]
     Indication: CONVULSION
  5. PROZAC [Concomitant]
  6. TYLENOL (CAPLET) [Concomitant]

REACTIONS (5)
  - BRADYCARDIA [None]
  - DRUG SPECIFIC ANTIBODY PRESENT [None]
  - HEPATOTOXICITY [None]
  - INFUSION RELATED REACTION [None]
  - THROMBOCYTOPENIA [None]
